FAERS Safety Report 6206597-3 (Version None)
Quarter: 2009Q2

REPORT INFORMATION
  Report Type: 
  Country: None (occurrence: None)
  Receive Date: 20090528
  Receipt Date: 20090520
  Transmission Date: 20091009
  Serious: Yes (Life-Threatening, Hospitalization, Other)
  Sender: FDA-Public Use
  Company Number: DE-CELGENEUS-062-C5013-09020713

PATIENT
  Sex: Male
  Weight: 73 kg

DRUGS (28)
  1. CC-5013 [Suspect]
     Indication: MULTIPLE MYELOMA
     Route: 048
     Dates: start: 20081125, end: 20090112
  2. CC-5013 [Suspect]
     Route: 048
     Dates: start: 20090129, end: 20090218
  3. DEXAMETHASONE 4MG TAB [Suspect]
     Indication: MULTIPLE MYELOMA
     Route: 048
     Dates: start: 20081125, end: 20090113
  4. DEXAMETHASONE 4MG TAB [Suspect]
     Route: 048
     Dates: start: 20090129, end: 20090219
  5. RAMIPRIL [Concomitant]
     Route: 048
  6. ALLOPURINOL [Concomitant]
     Indication: PROPHYLAXIS
     Route: 048
  7. SIMVASTATIN [Concomitant]
     Route: 048
  8. METAMIZOLE [Concomitant]
     Indication: PAIN
     Route: 048
  9. ATENOLOL [Concomitant]
     Route: 048
  10. HYDROMORPHONE HCL [Concomitant]
     Indication: PAIN
     Route: 048
  11. PREGABALIN [Concomitant]
     Indication: PAIN
     Route: 048
  12. AMITRIPTYLINE HCL [Concomitant]
     Indication: PAIN
     Route: 048
  13. MACROGOL [Concomitant]
     Dosage: BAG
     Route: 048
  14. ZOPICLON [Concomitant]
     Indication: AGITATION
     Route: 048
  15. PILOCARPIN [Concomitant]
     Route: 065
  16. BRIMONIDINE TARTRATE [Concomitant]
     Route: 065
  17. LATANOPROST [Concomitant]
     Route: 065
  18. PAMIDRONATE DISODIUM [Concomitant]
     Indication: MULTIPLE MYELOMA
     Route: 051
     Dates: start: 20081031
  19. RINGER'S [Concomitant]
     Indication: VERTIGO
     Route: 051
     Dates: start: 20081126, end: 20081126
  20. CLEXANE [Concomitant]
     Indication: ANTICOAGULANT THERAPY
     Route: 065
  21. BISOPROLOL [Concomitant]
     Indication: DRUG USE FOR UNKNOWN INDICATION
     Route: 065
  22. TORSEMIDE [Concomitant]
     Indication: DRUG USE FOR UNKNOWN INDICATION
     Route: 065
  23. MIRTAZAPINE [Concomitant]
     Indication: DRUG USE FOR UNKNOWN INDICATION
     Route: 065
  24. METOCLOPRAMIDE [Concomitant]
     Indication: DRUG USE FOR UNKNOWN INDICATION
     Route: 065
  25. FLURAZEPAM [Concomitant]
     Indication: DRUG USE FOR UNKNOWN INDICATION
     Route: 065
  26. ACETYLSALICYLIC ACID SRT [Concomitant]
     Indication: DRUG USE FOR UNKNOWN INDICATION
     Route: 065
  27. LINEZOLID [Concomitant]
     Indication: ANTIBIOTIC THERAPY
     Route: 065
  28. CIPROFLOXACIN [Concomitant]
     Indication: ANTIBIOTIC THERAPY
     Route: 065

REACTIONS (4)
  - ABSCESS [None]
  - ACUTE MYOCARDIAL INFARCTION [None]
  - BONE PAIN [None]
  - PROSTHESIS IMPLANTATION [None]
